FAERS Safety Report 13403771 (Version 1)
Quarter: 2017Q2

REPORT INFORMATION
  Report Type: Spontaneous
  Country: DE (occurrence: DE)
  Receive Date: 20170405
  Receipt Date: 20170405
  Transmission Date: 20170830
  Serious: Yes (Hospitalization)
  Sender: FDA-Public Use
  Company Number: PHHY2017DE050081

PATIENT
  Age: 71 Year
  Sex: Male

DRUGS (8)
  1. ROTIGOTINE [Concomitant]
     Active Substance: ROTIGOTINE
     Indication: PARKINSON^S DISEASE
     Dosage: 3 MG, QD
     Route: 062
  2. ENTACAPONE. [Suspect]
     Active Substance: ENTACAPONE
     Indication: PARKINSON^S DISEASE
     Dosage: 800 MG, QD
     Route: 065
  3. ENTACAPONE. [Suspect]
     Active Substance: ENTACAPONE
     Dosage: 1000 MG, QD
     Route: 065
  4. AMANTADINE. [Suspect]
     Active Substance: AMANTADINE HYDROCHLORIDE
     Indication: PARKINSON^S DISEASE
     Dosage: 200 MG, QD
     Route: 042
  5. RASAGILINE. [Suspect]
     Active Substance: RASAGILINE
     Indication: PARKINSON^S DISEASE
     Dosage: 1 MG, QD
     Route: 065
  6. L DOPA [Concomitant]
     Active Substance: LEVODOPA
     Indication: PARKINSON^S DISEASE
     Dosage: 500 MG, QD
     Route: 065
  7. L DOPA [Concomitant]
     Active Substance: LEVODOPA
     Dosage: 625 MG, QD
     Route: 065
  8. L DOPA [Concomitant]
     Active Substance: LEVODOPA
     Dosage: 600 MG, QD
     Route: 065

REACTIONS (10)
  - Somnolence [Recovering/Resolving]
  - Dyskinesia [Recovering/Resolving]
  - Gait disturbance [Recovering/Resolving]
  - Withdrawal syndrome [Recovering/Resolving]
  - Psychomotor hyperactivity [Recovering/Resolving]
  - Delirium [Recovering/Resolving]
  - Hallucination, visual [Recovering/Resolving]
  - Fall [Recovering/Resolving]
  - Substance-induced psychotic disorder [Recovering/Resolving]
  - Confusional state [Recovering/Resolving]
